FAERS Safety Report 14066232 (Version 1)
Quarter: 2017Q4

REPORT INFORMATION
  Report Type: Report from Study
  Country: None (occurrence: CA)
  Receive Date: 20171009
  Receipt Date: 20171009
  Transmission Date: 20180321
  Serious: Yes (Other)
  Sender: FDA-Public Use
  Company Number: CA-ABBVIE-17S-028-2120861-00

PATIENT
  Age: 74 Year
  Sex: Male

DRUGS (1)
  1. LUPRON DEPOT [Suspect]
     Active Substance: LEUPROLIDE ACETATE
     Indication: PROSTATE CANCER
     Route: 030
     Dates: start: 20141017

REACTIONS (3)
  - Hot flush [Unknown]
  - Phlebectomy [Unknown]
  - Postoperative wound infection [Not Recovered/Not Resolved]

NARRATIVE: CASE EVENT DATE: 2017
